FAERS Safety Report 16024137 (Version 1)
Quarter: 2019Q1

REPORT INFORMATION
  Report Type: Spontaneous
  Country: US (occurrence: US)
  Receive Date: 20190301
  Receipt Date: 20190301
  Transmission Date: 20190418
  Serious: No
  Sender: FDA-Public Use
  Company Number: US-FRESENIUS KABI-FK201902183

PATIENT
  Sex: Female

DRUGS (3)
  1. POLY-L-LACTIC ACID [Suspect]
     Active Substance: POLYLACTIDE, L-
     Indication: SKIN COSMETIC PROCEDURE
     Route: 065
     Dates: start: 20080719
  2. WATER FOR INJECTION [Suspect]
     Active Substance: WATER
     Indication: SKIN COSMETIC PROCEDURE
     Route: 065
     Dates: start: 20080719
  3. XYLOCAINE [Suspect]
     Active Substance: LIDOCAINE HYDROCHLORIDE
     Indication: SKIN COSMETIC PROCEDURE
     Route: 065
     Dates: start: 20080719

REACTIONS (6)
  - Injection site warmth [Unknown]
  - Pyrexia [Unknown]
  - Product contamination [Unknown]
  - Product use in unapproved indication [Unknown]
  - Swelling [Unknown]
  - Injection site erythema [Unknown]
